FAERS Safety Report 8209059-7 (Version None)
Quarter: 2012Q1

REPORT INFORMATION
  Report Type: 
  Country: None (occurrence: None)
  Receive Date: 20120314
  Receipt Date: 20120309
  Transmission Date: 20120608
  Serious: Yes (Other)
  Sender: FDA-Public Use
  Company Number: GB-ROCHE-GNE324776

PATIENT
  Age: 88 Year

DRUGS (8)
  1. LUCENTIS [Suspect]
     Dosage: UNK UNK, UNKNOWN
     Route: 050
     Dates: start: 20091016
  2. LUCENTIS [Suspect]
     Dosage: UNK UNK, UNKNOWN
     Route: 050
     Dates: start: 20090818
  3. BEZAFIBRATE [Concomitant]
  4. FELODIPINE [Concomitant]
  5. ATENOLOL [Concomitant]
  6. NICORANDIL [Concomitant]
  7. LUCENTIS [Suspect]
     Indication: PRODUCT USED FOR UNKNOWN INDICATION
     Dosage: UNK UNK, UNKNOWN
     Route: 050
     Dates: start: 20090714
  8. ENALAPRIL MALEATE [Concomitant]

REACTIONS (1)
  - ANGINA PECTORIS [None]
